FAERS Safety Report 9196182 (Version 1)
Quarter: 2013Q1

REPORT INFORMATION
  Report Type: Spontaneous
  Country: CN (occurrence: CN)
  Receive Date: 20130328
  Receipt Date: 20130328
  Transmission Date: 20140127
  Serious: Yes (Other)
  Sender: FDA-Public Use
  Company Number: CN-JNJFOC-20130313847

PATIENT
  Age: 3 Year
  Sex: Female
  Weight: 12 kg

DRUGS (2)
  1. CHILDREN^S MOTRIN [Suspect]
     Route: 048
  2. CHILDREN^S MOTRIN [Suspect]
     Indication: ACCIDENTAL EXPOSURE TO PRODUCT
     Dosage: 50 ML, 100 ML BOTTLE: 2 G
     Route: 048
     Dates: start: 20130320

REACTIONS (1)
  - Accidental exposure to product by child [Unknown]
